FAERS Safety Report 5206063-8 (Version None)
Quarter: 2007Q1

REPORT INFORMATION
  Report Type: 
  Country: None (occurrence: None)
  Receive Date: 20070111
  Receipt Date: 20070103
  Transmission Date: 20070707
  Serious: Yes (Life-Threatening, Hospitalization)
  Sender: FDA-Public Use
  Company Number: US-ABBOTT-06P-163-0343731-00

PATIENT
  Sex: Male
  Weight: 75.82 kg

DRUGS (11)
  1. RITONAVIR SOFT GELATIN CAPSULES [Suspect]
     Indication: HIV INFECTION
     Route: 048
     Dates: start: 20060411, end: 20060807
  2. TMC114 [Concomitant]
     Indication: HIV INFECTION
     Route: 048
     Dates: start: 20060411, end: 20060807
  3. TRUVADA [Concomitant]
     Indication: HIV INFECTION
     Route: 048
     Dates: start: 20060411
  4. AZITHROMYCIN [Concomitant]
     Indication: PROPHYLAXIS
     Route: 048
  5. FLUCONAZOLE [Concomitant]
     Indication: CANDIDIASIS
     Route: 048
  6. VALCYTE [Concomitant]
     Indication: CYTOMEGALOVIRUS CHORIORETINITIS
     Route: 048
  7. FILGRASTIM [Concomitant]
     Indication: NEUTROPENIA
     Route: 042
  8. CENTRUM SILVER [Concomitant]
     Indication: MEDICAL DIET
     Route: 048
  9. ASCORBIC ACID [Concomitant]
     Indication: MEDICAL DIET
     Route: 048
  10. DARBEPOETIN ALFA [Concomitant]
     Indication: NEUTROPENIA
     Route: 058
  11. ATOVAQUONE [Concomitant]
     Indication: PNEUMOCYSTIS JIROVECI INFECTION
     Route: 048
     Dates: start: 20060623

REACTIONS (5)
  - HAEMOPTYSIS [None]
  - MASS [None]
  - PLATELET COUNT DECREASED [None]
  - PULMONARY MASS [None]
  - PYREXIA [None]
